FAERS Safety Report 4390070-1 (Version None)
Quarter: 2004Q3

REPORT INFORMATION
  Report Type: 
  Country: None (occurrence: None)
  Receive Date: 20040706
  Receipt Date: 20040609
  Transmission Date: 20050211
  Serious: Yes (Death, Hospitalization)
  Sender: FDA-Public Use
  Company Number: JP-BRISTOL-MYERS SQUIBB COMPANY-12609970

PATIENT
  Age: 64 Year
  Sex: Male

DRUGS (3)
  1. HYDREA [Suspect]
     Indication: THROMBOCYTHAEMIA
     Route: 048
  2. RANIMUSTINE [Suspect]
     Indication: THROMBOCYTHAEMIA
  3. 6-MP [Suspect]
     Indication: THROMBOCYTHAEMIA

REACTIONS (1)
  - LYMPHOMA [None]
